FAERS Safety Report 6156054-8 (Version None)
Quarter: 2009Q2

REPORT INFORMATION
  Report Type: 
  Country: None (occurrence: None)
  Receive Date: 20090415
  Receipt Date: 20090407
  Transmission Date: 20091009
  Serious: Yes (Other)
  Sender: FDA-Public Use
  Company Number: US-ELI_LILLY_AND_COMPANY-US200903003150

PATIENT
  Sex: Male
  Weight: 81.633 kg

DRUGS (4)
  1. FORTEO [Suspect]
     Indication: OSTEOPOROSIS
     Dosage: 20 UG, DAILY (1/D)
     Dates: start: 20090201, end: 20090101
  2. HUMALOG [Concomitant]
     Dosage: UNK, UNK
     Dates: start: 19940101
  3. LISINOPRIL [Concomitant]
  4. FOLIC ACID [Concomitant]

REACTIONS (6)
  - FACE INJURY [None]
  - FALL [None]
  - HYPOGLYCAEMIA [None]
  - LOSS OF CONSCIOUSNESS [None]
  - RIB FRACTURE [None]
  - TOOTH FRACTURE [None]
